FAERS Safety Report 9025598 (Version 2)
Quarter: 2013Q1

REPORT INFORMATION
  Report Type: Spontaneous
  Country: JP (occurrence: JP)
  Receive Date: 20130123
  Receipt Date: 20130125
  Transmission Date: 20140127
  Serious: Yes (Other)
  Sender: FDA-Public Use
  Company Number: JP-B.I. PHARMACEUTICALS,INC./RIDGEFIELD-2013-BI-01271YA

PATIENT
  Age: 88 Year
  Sex: Male

DRUGS (1)
  1. TAMSULOSINA [Suspect]
     Route: 048

REACTIONS (1)
  - Electrocardiogram QT prolonged [Unknown]
